FAERS Safety Report 24022537 (Version 1)
Quarter: 2024Q2

REPORT INFORMATION
  Report Type: Spontaneous
  Country: CN (occurrence: CN)
  Receive Date: 20240627
  Receipt Date: 20240627
  Transmission Date: 20240716
  Serious: No
  Sender: FDA-Public Use
  Company Number: CN-ROCHE-3515167

PATIENT
  Age: 66 Year
  Sex: Male

DRUGS (3)
  1. ROZLYTREK [Suspect]
     Active Substance: ENTRECTINIB
     Indication: Lung adenocarcinoma stage IV
     Route: 065
     Dates: start: 202212
  2. ROZLYTREK [Suspect]
     Active Substance: ENTRECTINIB
     Route: 065
  3. ROZLYTREK [Suspect]
     Active Substance: ENTRECTINIB
     Route: 065

REACTIONS (1)
  - Blood creatinine increased [Unknown]
